FAERS Safety Report 16342914 (Version 1)
Quarter: 2019Q2

REPORT INFORMATION
  Report Type: Spontaneous
  Country: US (occurrence: US)
  Receive Date: 20190522
  Receipt Date: 20190522
  Transmission Date: 20190711
  Serious: Yes (Other)
  Sender: FDA-Public Use
  Company Number: US-FRESENIUS KABI-FK201905759

PATIENT
  Age: 66 Year
  Sex: Female
  Weight: 56.69 kg

DRUGS (1)
  1. HYDRALAZINE HYDROCHLORIDE INJECTION, USP [Suspect]
     Active Substance: HYDRALAZINE HYDROCHLORIDE
     Indication: HYPERTENSION
     Route: 042
     Dates: start: 20190517, end: 20190517

REACTIONS (2)
  - Hypersensitivity [Recovering/Resolving]
  - Aphasia [Recovering/Resolving]

NARRATIVE: CASE EVENT DATE: 20190518
